FAERS Safety Report 11189692 (Version 1)
Quarter: 2015Q2

REPORT INFORMATION
  Report Type: Spontaneous
  Country: US (occurrence: US)
  Receive Date: 20150615
  Receipt Date: 20150615
  Transmission Date: 20150821
  Serious: Yes (Other)
  Sender: FDA-Public Use
  Company Number: US-UNITED THERAPEUTICS-UNT-2015-006047

PATIENT
  Age: 51 Year
  Sex: Female
  Weight: 79.37 kg

DRUGS (2)
  1. REMODULIN [Suspect]
     Active Substance: TREPROSTINIL
     Indication: PULMONARY ARTERIAL HYPERTENSION
     Dosage: 0.0083 ?G/KG, CONTINUING
     Route: 041
     Dates: start: 20150501
  2. REMODULIN [Suspect]
     Active Substance: TREPROSTINIL
     Dosage: 0.0104 ?G/KG, CONTINUING
     Route: 041
     Dates: start: 20150501

REACTIONS (2)
  - Blood potassium abnormal [Unknown]
  - Oedema peripheral [Not Recovered/Not Resolved]

NARRATIVE: CASE EVENT DATE: 201505
